FAERS Safety Report 4560999-X (Version None)
Quarter: 2005Q1

REPORT INFORMATION
  Report Type: 
  Country: None (occurrence: None)
  Receive Date: 20050126
  Receipt Date: 20040615
  Transmission Date: 20050727
  Serious: No
  Sender: FDA-Public Use
  Company Number: US-BRISTOL-MYERS SQUIBB COMPANY-12615449

PATIENT
  Sex: Male

DRUGS (1)
  1. GLUCOPHAGE [Suspect]

REACTIONS (4)
  - NAIL DISCOLOURATION [None]
  - THIRST [None]
  - TOOTH DISORDER [None]
  - VISUAL ACUITY REDUCED [None]
